FAERS Safety Report 5677648-X (Version None)
Quarter: 2008Q1

REPORT INFORMATION
  Report Type: 
  Country: None (occurrence: None)
  Receive Date: 20080318
  Receipt Date: 20080307
  Transmission Date: 20080703
  Serious: Yes (Hospitalization)
  Sender: FDA-Public Use
  Company Number: 100#08#2008-01451

PATIENT
  Age: 50 Year
  Sex: Male

DRUGS (7)
  1. SALBUTAMOL (SALBUTAMOL) [Suspect]
     Indication: ASTHMA
     Dosage: 0.8 MG/H
     Route: 042
  2. TERBUTALINE SULFATE [Suspect]
     Indication: ASTHMA
     Dosage: 5 MG EVERY TWO HOURS
     Route: 055
  3. VALPROIC ACID [Concomitant]
  4. IPRATROPIUM BROMIDE [Concomitant]
  5. METHYLPREDNISOLONE [Concomitant]
  6. OXYGEN (OXYGEN) [Concomitant]
  7. SERUM (5% GLUCOSE, SODIUM CHLORIDE, POTASSIUM CHLORIDE) [Concomitant]

REACTIONS (1)
  - LACTIC ACIDOSIS [None]
